FAERS Safety Report 21039979 (Version 1)
Quarter: 2022Q3

REPORT INFORMATION
  Report Type: Spontaneous
  Country: US (occurrence: US)
  Receive Date: 20220704
  Receipt Date: 20220704
  Transmission Date: 20221027
  Serious: No
  Sender: FDA-Public Use
  Company Number: US-GLAXOSMITHKLINE-US2022AMR100479

PATIENT
  Sex: Female

DRUGS (1)
  1. WELLBUTRIN [Suspect]
     Active Substance: BUPROPION HYDROCHLORIDE
     Indication: Multiple sclerosis
     Dosage: UNK

REACTIONS (4)
  - Generalised oedema [Unknown]
  - Rash [Unknown]
  - Drug hypersensitivity [Unknown]
  - Off label use [Unknown]
